FAERS Safety Report 14567803 (Version 2)
Quarter: 2019Q1

REPORT INFORMATION
  Report Type: Spontaneous
  Country: US (occurrence: US)
  Receive Date: 20180223
  Receipt Date: 20190226
  Transmission Date: 20190417
  Serious: No
  Sender: FDA-Public Use
  Company Number: US-FERRINGPH-2017FE00087

PATIENT
  Age: 11 Year
  Sex: Female

DRUGS (1)
  1. STIMATE [Suspect]
     Active Substance: DESMOPRESSIN ACETATE
     Indication: COAGULATION FACTOR DEFICIENCY
     Dosage: 1.5 MG, AS NEEDED
     Route: 045
     Dates: start: 20161024

REACTIONS (1)
  - Contusion [Unknown]
